FAERS Safety Report 9966480 (Version 1)
Quarter: 2014Q1

REPORT INFORMATION
  Report Type: Report from Study
  Country: US (occurrence: US)
  Receive Date: 20140305
  Receipt Date: 20140305
  Transmission Date: 20141002
  Serious: No
  Sender: FDA-Public Use
  Company Number: US-ABBVIE-13P-163-1120521-00

PATIENT
  Age: 63 Year
  Sex: Male

DRUGS (10)
  1. HUMIRA [Suspect]
     Indication: PSORIASIS
     Dates: start: 20130430
  2. ALPRAZOLAM [Concomitant]
     Indication: DEPRESSION
     Dosage: BID
  3. OMEPRAZOLE [Concomitant]
     Indication: GASTROOESOPHAGEAL REFLUX DISEASE
  4. AMITRIPTYLINE [Concomitant]
     Indication: PAIN
     Dosage: 1-2 TABLETS AS NEEDED
  5. LOSARTAN HCTZ [Concomitant]
     Indication: HYPERTENSION
     Dosage: 100MG/25MG EVERY DAY
  6. OXYCODONE [Concomitant]
     Indication: PRODUCT USED FOR UNKNOWN INDICATION
     Dosage: 5 A DAY
  7. TRAZODONE [Concomitant]
     Indication: INSOMNIA
     Dosage: 100MG DAILY
  8. SERTRALINE [Concomitant]
     Indication: DEPRESSION
  9. SERTRALINE [Concomitant]
  10. BYSTOLIC [Concomitant]
     Indication: HYPERTENSION

REACTIONS (1)
  - Diarrhoea [Not Recovered/Not Resolved]
